FAERS Safety Report 23583930 (Version 1)
Quarter: 2024Q1

REPORT INFORMATION
  Report Type: Spontaneous
  Country: US (occurrence: US)
  Receive Date: 20240301
  Receipt Date: 20240301
  Transmission Date: 20240410
  Serious: Yes (Other)
  Sender: FDA-Public Use
  Company Number: US-SPECGX-T202302143

PATIENT
  Age: 5 Decade
  Sex: Female

DRUGS (17)
  1. METHADONE [Suspect]
     Active Substance: METHADONE HYDROCHLORIDE
     Indication: Breakthrough pain
     Dosage: 5 MILLIGRAM, Q8H
     Route: 065
  2. METHADONE [Suspect]
     Active Substance: METHADONE HYDROCHLORIDE
     Dosage: 7.5 MILLIGRAM, Q8H
     Route: 065
  3. FENTANYL TRANSDERMAL SYSTEM [Suspect]
     Active Substance: FENTANYL
     Indication: Breakthrough pain
     Dosage: 75 MCG/HOUR
     Route: 062
  4. ACETAMINOPHEN\OXYCODONE HYDROCHLORIDE [Suspect]
     Active Substance: ACETAMINOPHEN\OXYCODONE HYDROCHLORIDE
     Indication: Neck pain
     Dosage: 10/325 EVERY SIX HOURS AS NEEDED
     Route: 065
  5. ACETAMINOPHEN\OXYCODONE HYDROCHLORIDE [Suspect]
     Active Substance: ACETAMINOPHEN\OXYCODONE HYDROCHLORIDE
     Indication: Breast pain
  6. ACETAMINOPHEN\OXYCODONE HYDROCHLORIDE [Suspect]
     Active Substance: ACETAMINOPHEN\OXYCODONE HYDROCHLORIDE
     Indication: Axillary pain
  7. MORPHINE [Suspect]
     Active Substance: MORPHINE
     Indication: Neck pain
     Dosage: 60 MILLIGRAM, Q12H
     Route: 065
  8. MORPHINE [Suspect]
     Active Substance: MORPHINE
     Indication: Breast pain
  9. MORPHINE [Suspect]
     Active Substance: MORPHINE
     Indication: Axillary pain
  10. ACETAMINOPHEN\HYDROCODONE [Suspect]
     Active Substance: ACETAMINOPHEN\HYDROCODONE
     Indication: Neck pain
     Dosage: 10/325 MG EVERY SIX HOURS
     Route: 065
  11. ACETAMINOPHEN\HYDROCODONE [Suspect]
     Active Substance: ACETAMINOPHEN\HYDROCODONE
     Indication: Breast pain
  12. ACETAMINOPHEN\HYDROCODONE [Suspect]
     Active Substance: ACETAMINOPHEN\HYDROCODONE
     Indication: Axillary pain
  13. HYDROMORPHONE [Suspect]
     Active Substance: HYDROMORPHONE
     Indication: Breakthrough pain
     Dosage: 2 MILLIGRAM, Q4H
     Route: 065
  14. HYDROMORPHONE [Suspect]
     Active Substance: HYDROMORPHONE
     Dosage: 4 MILLIGRAM, PRN
     Route: 065
  15. HYDROCODONE [Suspect]
     Active Substance: HYDROCODONE
     Indication: Neck pain
     Dosage: 80 MILLIGRAM
     Route: 065
  16. HYDROCODONE [Suspect]
     Active Substance: HYDROCODONE
     Indication: Breast pain
  17. HYDROCODONE [Suspect]
     Active Substance: HYDROCODONE
     Indication: Axillary pain

REACTIONS (4)
  - Myoclonus [Unknown]
  - Electrocardiogram QT prolonged [Recovered/Resolved]
  - Somnolence [Unknown]
  - Drug ineffective [Unknown]
